FAERS Safety Report 8100658-X (Version None)
Quarter: 2012Q1

REPORT INFORMATION
  Report Type: 
  Country: None (occurrence: None)
  Receive Date: 20120129
  Receipt Date: 20111221
  Transmission Date: 20120608
  Serious: No
  Sender: FDA-Public Use
  Company Number: PR-ABBOTT-11P-131-0887114-00

PATIENT
  Sex: Male
  Weight: 88.984 kg

DRUGS (3)
  1. HUMIRA [Suspect]
     Indication: ANKYLOSING SPONDYLITIS
     Dates: start: 20100101, end: 20111123
  2. UNKNOWN MEDICATION [Concomitant]
     Indication: HYPERTENSION
     Route: 048
  3. GLUCOSOL [Concomitant]
     Indication: PRODUCT USED FOR UNKNOWN INDICATION
     Route: 048

REACTIONS (1)
  - COLONIC POLYP [None]
